FAERS Safety Report 16068391 (Version 1)
Quarter: 2019Q1

REPORT INFORMATION
  Report Type: Spontaneous
  Country: GB (occurrence: GB)
  Receive Date: 20190313
  Receipt Date: 20190313
  Transmission Date: 20190418
  Serious: Yes (Other)
  Sender: FDA-Public Use
  Company Number: GB-TEVA-2019-GB-1022533

PATIENT
  Age: 79 Year
  Sex: Female
  Weight: 58 kg

DRUGS (10)
  1. CLOPIDOGREL [Concomitant]
     Active Substance: CLOPIDOGREL BISULFATE
     Dosage: 1 DOSAGE FORMS DAILY;
     Dates: start: 20180810
  2. LEVOTHYROXINE. [Concomitant]
     Active Substance: LEVOTHYROXINE
     Dosage: 1 DOSAGE FORMS DAILY;
     Dates: start: 20180925
  3. PROPRANOLOL [Suspect]
     Active Substance: PROPRANOLOL HYDROCHLORIDE
     Dosage: 20 MILLIGRAM DAILY;
     Dates: start: 20190110, end: 20190124
  4. DOCUSATE SODIUM. [Concomitant]
     Active Substance: DOCUSATE SODIUM
     Indication: CONSTIPATION
     Dosage: 4 DOSAGE FORMS DAILY;
     Dates: start: 20180810
  5. E45 [Concomitant]
     Active Substance: LANOLIN\LIGHT MINERAL OIL\PARAFFIN
     Dosage: APPLY DAILY AS A SKIN EMOILLIENT
     Dates: start: 20180810, end: 20190109
  6. HYDROXOCOBALAMIN [Concomitant]
     Active Substance: HYDROXOCOBALAMIN
     Dosage: USE AS DIRECTED
     Dates: start: 20190115
  7. CARBOMERS [Concomitant]
     Dosage: USE AS DIRECTED
     Dates: start: 20180810, end: 20190109
  8. OLANZAPINE. [Concomitant]
     Active Substance: OLANZAPINE
     Dosage: 1 DOSAGE FORMS DAILY;
     Dates: start: 20180810
  9. PREGABALIN. [Concomitant]
     Active Substance: PREGABALIN
     Dosage: 1 DOSAGE FORMS DAILY;
     Dates: start: 20180810
  10. MIRTAZAPINE. [Concomitant]
     Active Substance: MIRTAZAPINE
     Dosage: 1 DOSAGE FORMS DAILY; AT NIGHT
     Dates: start: 20180810

REACTIONS (3)
  - Dry skin [Unknown]
  - Erythema [Unknown]
  - Rash [Unknown]
